FAERS Safety Report 21921371 (Version 1)
Quarter: 2023Q1

REPORT INFORMATION
  Report Type: Spontaneous
  Country: US (occurrence: US)
  Receive Date: 20230127
  Receipt Date: 20230127
  Transmission Date: 20230418
  Serious: No
  Sender: FDA-Public Use
  Company Number: US-ABBVIE-4253894

PATIENT
  Sex: Male

DRUGS (1)
  1. HUMIRA [Suspect]
     Active Substance: ADALIMUMAB
     Indication: Psoriasis
     Route: 058

REACTIONS (7)
  - Muscle tightness [Unknown]
  - Arthritis [Unknown]
  - Feeling abnormal [Unknown]
  - Pain [Unknown]
  - Inflammation [Unknown]
  - Device issue [Unknown]
  - Musculoskeletal stiffness [Unknown]
